FAERS Safety Report 6782288-5 (Version None)
Quarter: 2010Q2

REPORT INFORMATION
  Report Type: 
  Country: None (occurrence: None)
  Receive Date: 20100621
  Receipt Date: 20100611
  Transmission Date: 20101027
  Serious: Yes (Hospitalization)
  Sender: FDA-Public Use
  Company Number: US-WYE-H15647910

PATIENT
  Age: 78 Year
  Sex: Female
  Weight: 90.8 kg

DRUGS (5)
  1. ROBITUSSIN COUGH AND CHEST CONGESTION DM [Suspect]
     Indication: COUGH
     Dosage: 2 TEASPOONS AS NEEDED (ACCORDING TO LABEL)
     Route: 048
     Dates: end: 20100504
  2. ROBITUSSIN COUGH AND CHEST CONGESTION DM [Suspect]
     Indication: UPPER RESPIRATORY TRACT CONGESTION
  3. METOPROLOL TARTRATE [Concomitant]
     Indication: HYPERTENSION
     Route: 048
  4. DIOVAN [Concomitant]
     Indication: HYPERTENSION
     Route: 048
  5. VERAPAMIL [Concomitant]
     Indication: HYPERTENSION
     Route: 048
     Dates: start: 19900101

REACTIONS (2)
  - INTRACARDIAC THROMBUS [None]
  - PULMONARY THROMBOSIS [None]
